FAERS Safety Report 9602289 (Version 2)
Quarter: 2013Q4

REPORT INFORMATION
  Report Type: Spontaneous
  Country: US (occurrence: US)
  Receive Date: 20131007
  Receipt Date: 20131212
  Transmission Date: 20140711
  Serious: No
  Sender: FDA-Public Use
  Company Number: US-009507513-1309USA010937

PATIENT
  Age: 65 Year
  Sex: Female
  Weight: 94.33 kg

DRUGS (1)
  1. ASMANEX TWISTHALER [Suspect]
     Dosage: 1 DF, HS
     Route: 055
     Dates: start: 20130913, end: 20131011

REACTIONS (3)
  - Product quality issue [Unknown]
  - Drug dose omission [Unknown]
  - No adverse event [Unknown]
